FAERS Safety Report 13179177 (Version 1)
Quarter: 2017Q1

REPORT INFORMATION
  Report Type: Spontaneous
  Country: IN (occurrence: IN)
  Receive Date: 20170202
  Receipt Date: 20170202
  Transmission Date: 20170428
  Serious: Yes (Death)
  Sender: FDA-Public Use
  Company Number: IN-ASTELLAS-2017US003982

PATIENT
  Sex: Male

DRUGS (1)
  1. PROGRAF [Suspect]
     Active Substance: TACROLIMUS\TACROLIMUS ANHYDROUS
     Indication: PROPHYLAXIS AGAINST TRANSPLANT REJECTION
     Dosage: 1.5 TO 2.5 MG, TWICE DAILY
     Route: 048
     Dates: start: 201609, end: 201701

REACTIONS (3)
  - Hypotension [Fatal]
  - Blood glucose increased [Fatal]
  - Decreased appetite [Fatal]

NARRATIVE: CASE EVENT DATE: 201701
